FAERS Safety Report 5137450-4 (Version None)
Quarter: 2006Q4

REPORT INFORMATION
  Report Type: 
  Country: None (occurrence: None)
  Receive Date: 20061030
  Receipt Date: 20061016
  Transmission Date: 20070319
  Serious: Yes (Hospitalization)
  Sender: FDA-Public Use
  Company Number: US-JNJFOC-20061003720

PATIENT
  Sex: Male
  Weight: 96.62 kg

DRUGS (2)
  1. FENTANYL TRANSDERMAL SYSTEM [Suspect]
     Indication: PAIN
     Route: 062
  2. HYDROCODONE [Concomitant]
     Indication: PAIN
     Dosage: MAY HAVE 1 EVERY 8 HOURS
     Route: 048

REACTIONS (5)
  - ATRIAL FIBRILLATION [None]
  - CONFUSIONAL STATE [None]
  - INADEQUATE ANALGESIA [None]
  - PNEUMONIA [None]
  - RESPIRATORY DISTRESS [None]
